FAERS Safety Report 25527623 (Version 1)
Quarter: 2025Q3

REPORT INFORMATION
  Report Type: Spontaneous
  Country: US (occurrence: US)
  Receive Date: 20250708
  Receipt Date: 20250708
  Transmission Date: 20251021
  Serious: Yes (Other)
  Sender: SANOFI AVENTIS
  Company Number: US-SA-2025SA190387

PATIENT
  Age: 77 Year
  Sex: Male
  Weight: 74.376 kg

DRUGS (12)
  1. DUPIXENT [Suspect]
     Active Substance: DUPILUMAB
     Indication: Dermatitis
     Dosage: 300 MG, QOW
     Route: 058
  2. FLONASE ALLERGY RELIEF [Concomitant]
     Active Substance: FLUTICASONE PROPIONATE
  3. CICLOPIROX [Concomitant]
     Active Substance: CICLOPIROX
  4. VITAMIN D3 [Concomitant]
     Active Substance: CHOLECALCIFEROL
  5. KETOCONAZOLE [Concomitant]
     Active Substance: KETOCONAZOLE
  6. LATANOPROST [Concomitant]
     Active Substance: LATANOPROST
  7. CLOBETASOL [Concomitant]
     Active Substance: CLOBETASOL
  8. ANDROGEL [Concomitant]
     Active Substance: TESTOSTERONE
  9. MELOXICAM [Concomitant]
     Active Substance: MELOXICAM
  10. TAMSULOSIN HYDROCHLORIDE [Concomitant]
     Active Substance: TAMSULOSIN HYDROCHLORIDE
  11. ATORVASTATIN CALCIUM [Concomitant]
     Active Substance: ATORVASTATIN CALCIUM
  12. JANUVIA [Concomitant]
     Active Substance: SITAGLIPTIN PHOSPHATE

REACTIONS (2)
  - Diabetes mellitus [Unknown]
  - Product use in unapproved indication [Unknown]

NARRATIVE: CASE EVENT DATE: 20250101
